FAERS Safety Report 9402064 (Version 3)
Quarter: 2013Q3

REPORT INFORMATION
  Report Type: Report from Study
  Country: US (occurrence: US)
  Receive Date: 20130716
  Receipt Date: 20130917
  Transmission Date: 20140515
  Serious: Yes (Other)
  Sender: FDA-Public Use
  Company Number: PHEH2013US012207

PATIENT
  Age: 33 Year
  Sex: Female
  Weight: 58.96 kg

DRUGS (7)
  1. GILENYA [Suspect]
     Indication: MULTIPLE SCLEROSIS
     Dosage: 0.5 MG, QD
     Route: 048
     Dates: start: 20130603
  2. ZOLOFT [Concomitant]
  3. PROVIGIL [Concomitant]
  4. OXYBUTYNIN [Concomitant]
  5. LAMICTAL [Concomitant]
  6. IMMUNOGLOBULIN I.V [Concomitant]
  7. MULTIVITAMINS [Concomitant]

REACTIONS (6)
  - Blood pressure decreased [Unknown]
  - Abdominal distension [Recovered/Resolved]
  - Fatigue [Unknown]
  - Headache [Recovered/Resolved]
  - Heart rate decreased [Unknown]
  - White blood cell count decreased [Recovering/Resolving]
